FAERS Safety Report 23054686 (Version 2)
Quarter: 2023Q4

REPORT INFORMATION
  Report Type: Spontaneous
  Country: US (occurrence: US)
  Receive Date: 20231011
  Receipt Date: 20231114
  Transmission Date: 20240109
  Serious: No
  Sender: FDA-Public Use
  Company Number: US-VERTEX PHARMACEUTICALS-2023-015029

PATIENT
  Age: 11 Year
  Sex: Female

DRUGS (2)
  1. TRIKAFTA [Suspect]
     Active Substance: ELEXACAFTOR\IVACAFTOR\TEZACAFTOR
     Indication: Cystic fibrosis
     Dosage: 1 ORANGE TAB IN AM AND 1 BLUE TAB IN PM
     Route: 048
     Dates: start: 20230620, end: 2023
  2. TRIKAFTA [Suspect]
     Active Substance: ELEXACAFTOR\IVACAFTOR\TEZACAFTOR
     Dosage: REDUCED
     Route: 048
     Dates: start: 2023, end: 2023

REACTIONS (3)
  - Aggression [Recovered/Resolved]
  - Irritability [Recovered/Resolved]
  - Impulse-control disorder [Recovered/Resolved]

NARRATIVE: CASE EVENT DATE: 20230701
